FAERS Safety Report 15149964 (Version 1)
Quarter: 2018Q3

REPORT INFORMATION
  Report Type: Spontaneous
  Country: ZA (occurrence: ZA)
  Receive Date: 20180716
  Receipt Date: 20180716
  Transmission Date: 20181010
  Serious: Yes (Hospitalization, Other)
  Sender: FDA-Public Use
  Company Number: ZA-PFIZER INC-2018280874

PATIENT
  Age: 58 Year
  Sex: Male

DRUGS (5)
  1. MYOPRIN [Suspect]
     Active Substance: ASPIRIN
     Dosage: 100 MG, UNK
  2. ALLOPURINOL SANDOZ [Suspect]
     Active Substance: ALLOPURINOL
     Dosage: 100 MG, UNK
  3. UNAT /01036501/ [Suspect]
     Active Substance: TORSEMIDE
     Dosage: 10 MG, UNK
  4. ASPAVOR [Suspect]
     Active Substance: ATORVASTATIN
     Dosage: 20 MG, UNK
  5. SPIRACTIN (SPIRONOLACTONE) [Suspect]
     Active Substance: SPIRONOLACTONE
     Dosage: 25 MG, UNK

REACTIONS (1)
  - Infection [Unknown]
